FAERS Safety Report 6690851-5 (Version None)
Quarter: 2010Q2

REPORT INFORMATION
  Report Type: 
  Country: None (occurrence: None)
  Receive Date: 20100421
  Receipt Date: 20060918
  Transmission Date: 20101027
  Serious: Yes (Other)
  Sender: FDA-Public Use
  Company Number: HQWYE708118AUG06

PATIENT
  Sex: Male
  Weight: 57 kg

DRUGS (3)
  1. BENEFIX [Suspect]
     Indication: FACTOR IX DEFICIENCY
     Dosage: 5000 IU Q 24 HOURS (87 IU/KG)
     Route: 042
     Dates: start: 20040609, end: 20040615
  2. AMPICILLIN [Concomitant]
     Route: 042
     Dates: start: 20040609, end: 20040609
  3. NITROFURANTOIN [Concomitant]
     Dosage: 50 MG DAILY FOR 5 MONTHS
     Route: 048

REACTIONS (1)
  - ANGINA PECTORIS [None]
